FAERS Safety Report 4322696-5 (Version None)
Quarter: 2004Q1

REPORT INFORMATION
  Report Type: 
  Country: None (occurrence: None)
  Receive Date: 20040318
  Receipt Date: 20030423
  Transmission Date: 20041129
  Serious: Yes (Hospitalization)
  Sender: FDA-Public Use
  Company Number: MK200304-0299-1

PATIENT
  Age: 67 Year
  Sex: Male

DRUGS (1)
  1. OPTIRAY 320 [Suspect]
     Indication: COMPUTERISED TOMOGRAM
     Dosage: 100 ML, ONCE
     Dates: start: 20030423, end: 20030423

REACTIONS (3)
  - DISCOMFORT [None]
  - EXTRAVASATION [None]
  - OEDEMA [None]
